FAERS Safety Report 19057159 (Version 2)
Quarter: 2022Q4

REPORT INFORMATION
  Report Type: Spontaneous
  Country: DE (occurrence: DE)
  Receive Date: 20210325
  Receipt Date: 20221024
  Transmission Date: 20230113
  Serious: Yes (Hospitalization)
  Sender: FDA-Public Use
  Company Number: None

PATIENT
  Age: 88 Year
  Sex: Male

DRUGS (8)
  1. CLINDAMYCIN [Suspect]
     Active Substance: CLINDAMYCIN
     Dosage: UNK
     Route: 048
  2. ERYTHROMYCIN [Suspect]
     Active Substance: ERYTHROMYCIN
     Dosage: 200 MG
     Route: 042
     Dates: end: 20201013
  3. METRONIDAZOLE [Suspect]
     Active Substance: METRONIDAZOLE
     Dosage: UNK
     Route: 048
     Dates: end: 20201004
  4. CEFUROXIME [Suspect]
     Active Substance: CEFUROXIME
     Dosage: UNK
     Route: 048
     Dates: end: 20201004
  5. TORSEMIDE [Suspect]
     Active Substance: TORSEMIDE
     Dosage: 10 MG, 1X/DAY,1-0-0-0
     Route: 048
  6. CEFOTAXIME [Suspect]
     Active Substance: CEFOTAXIME SODIUM
     Dosage: UNK
     Route: 048
  7. ALLOPURINOL [Concomitant]
     Active Substance: ALLOPURINOL
     Dosage: 300 MG, 1X/DAY, 1-0-0-0
     Route: 048
  8. PANTOPRAZOLE [Concomitant]
     Active Substance: PANTOPRAZOLE
     Dosage: 40 MG, 1X/DAY, 0-0-1-0
     Route: 048

REACTIONS (6)
  - Haematochezia [Unknown]
  - Diarrhoea [Unknown]
  - Electrolyte imbalance [Unknown]
  - Fall [Unknown]
  - Dizziness [Unknown]
  - Hypokalaemia [Unknown]
